FAERS Safety Report 6019137-9 (Version None)
Quarter: 2008Q4

REPORT INFORMATION
  Report Type: 
  Country: None (occurrence: None)
  Receive Date: 20081224
  Receipt Date: 20081215
  Transmission Date: 20090506
  Serious: Yes (Hospitalization)
  Sender: FDA-Public Use
  Company Number: JP-JNJFOC-20081201600

PATIENT
  Age: 10 Month
  Sex: Male

DRUGS (2)
  1. LOPEMIN FINE GRANULES FOR CHILDREN 0.05% [Suspect]
     Indication: DIARRHOEA
     Dosage: 0.3MG PER DOSE, TOTAL OF 5 DOSES IN 2 DAYS
     Route: 048
  2. MIYA BM [Concomitant]
     Route: 048

REACTIONS (4)
  - HYDRONEPHROSIS [None]
  - NEPHROLITHIASIS [None]
  - RENAL IMPAIRMENT [None]
  - URINARY RETENTION [None]
